FAERS Safety Report 10167922 (Version 2)
Quarter: 2014Q2

REPORT INFORMATION
  Report Type: Spontaneous
  Country: US (occurrence: US)
  Receive Date: 20140512
  Receipt Date: 20140610
  Transmission Date: 20141212
  Serious: Yes (Other)
  Sender: FDA-Public Use
  Company Number: US-VIIV HEALTHCARE LIMITED-A1071738A

PATIENT
  Sex: Male
  Weight: 95.5 kg

DRUGS (6)
  1. SELZENTRY [Suspect]
     Indication: HIV TROPISM TEST
     Dosage: 150MG TWICE PER DAY
     Route: 048
  2. LISINOPRIL [Suspect]
     Indication: BLOOD PRESSURE ABNORMAL
     Route: 065
  3. CLONIDINE [Suspect]
     Indication: BLOOD PRESSURE ABNORMAL
     Route: 065
  4. KALETRA [Concomitant]
  5. EPZICOM [Concomitant]
  6. ISENTRESS [Concomitant]

REACTIONS (8)
  - Aspiration [Recovering/Resolving]
  - Choking [Recovering/Resolving]
  - Orthostatic hypotension [Recovering/Resolving]
  - Syncope [Recovering/Resolving]
  - Dizziness [Recovering/Resolving]
  - Fall [Recovering/Resolving]
  - Suture insertion [Recovering/Resolving]
  - Dysphagia [Recovering/Resolving]
